FAERS Safety Report 5695364-5 (Version None)
Quarter: 2008Q2

REPORT INFORMATION
  Report Type: 
  Country: None (occurrence: None)
  Receive Date: 20080403
  Receipt Date: 20080325
  Transmission Date: 20081010
  Serious: Yes (Other)
  Sender: FDA-Public Use
  Company Number: 2008007258

PATIENT
  Sex: Female

DRUGS (1)
  1. LISTERINE WHITENING QUICK DISSOLVING STRIPS (NO ACTIVE INGREDIENT) [Suspect]
     Dosage: UNSPECIFIED, ORAL
     Route: 048

REACTIONS (3)
  - LIP SWELLING [None]
  - ORAL DISCOMFORT [None]
  - STOMATITIS [None]
